FAERS Safety Report 9783554 (Version 2)
Quarter: 2014Q1

REPORT INFORMATION
  Report Type: Spontaneous
  Country: US (occurrence: None)
  Receive Date: 20131223
  Receipt Date: 20140106
  Transmission Date: 20141002
  Serious: Yes (Other)
  Sender: FDA-Public Use
  Company Number: AUR-APL-2013-10504

PATIENT
  Age: 25 Year
  Sex: Female

DRUGS (6)
  1. VENLAFAXINE [Suspect]
     Indication: MAJOR DEPRESSION
     Dosage: 37.5 MG, 1 D
  2. ALPRAZOLAM (ALPRAZOLAM) [Concomitant]
  3. LAMOTRIGINE (LAMOTRIGINE) [Concomitant]
  4. CLONAZEPAM (CLONAZEPAM) (CLONAZEPAM) [Concomitant]
  5. FLUOXETINE (FLUOXETINE) [Concomitant]
  6. HYDROXYZINE (HYDROXYZINE) [Concomitant]

REACTIONS (3)
  - Depressed mood [None]
  - Condition aggravated [None]
  - Grand mal convulsion [None]
